FAERS Safety Report 7797794-4 (Version None)
Quarter: 2011Q4

REPORT INFORMATION
  Report Type: 
  Country: None (occurrence: None)
  Receive Date: 20111005
  Receipt Date: 20110923
  Transmission Date: 20120403
  Serious: Yes (Hospitalization)
  Sender: FDA-Public Use
  Company Number: US-ELI_LILLY_AND_COMPANY-US201009002795

PATIENT
  Sex: Female
  Weight: 80.726 kg

DRUGS (3)
  1. FORTEO [Suspect]
     Indication: OSTEOPOROSIS
     Dosage: 20 UG, DAILY (1/D)
     Route: 058
     Dates: start: 20100630
  2. FORTEO [Suspect]
     Dosage: 20 UG, QD
     Route: 058
  3. FORTEO [Suspect]
     Dosage: 20 UG, DAILY (1/D)
     Route: 058

REACTIONS (8)
  - ASTHENIA [None]
  - ANKLE FRACTURE [None]
  - FALL [None]
  - POSTOPERATIVE WOUND INFECTION [None]
  - MALAISE [None]
  - THROMBOSIS [None]
  - FATIGUE [None]
  - OEDEMA PERIPHERAL [None]
